FAERS Safety Report 7434473-7 (Version None)
Quarter: 2011Q2

REPORT INFORMATION
  Report Type: 
  Country: None (occurrence: None)
  Receive Date: 20110425
  Receipt Date: 20110420
  Transmission Date: 20111010
  Serious: Yes (Hospitalization, Other)
  Sender: FDA-Public Use
  Company Number: US-AMGEN-USASP2011014687

PATIENT
  Sex: Female

DRUGS (18)
  1. NPLATE [Suspect]
     Indication: IDIOPATHIC THROMBOCYTOPENIC PURPURA
     Dosage: 13 A?G/KG, UNK
     Dates: start: 20080801
  2. PREDNISONE [Concomitant]
     Dosage: 50 MG, QD
     Dates: start: 20110331
  3. DEXAMETHASONE [Concomitant]
     Dosage: UNK
     Dates: start: 20040101
  4. CAMPATH [Concomitant]
  5. PROMETA [Concomitant]
     Dosage: UNK
     Dates: start: 20090201, end: 20090601
  6. PREVPAC [Concomitant]
     Dosage: UNK
     Dates: start: 20090809
  7. CYCLOSPORINE [Concomitant]
  8. VALCYTE [Concomitant]
     Dosage: UNK
     Dates: start: 20101201, end: 20110310
  9. DANOCRINE [Concomitant]
     Dosage: UNK
     Dates: start: 19930101
  10. RITUXAN [Concomitant]
     Dosage: UNK
     Dates: start: 20080101
  11. AMICAR [Concomitant]
     Dosage: 8 ML, QD
     Dates: start: 20110113
  12. WINRHO [Concomitant]
     Dosage: UNK
     Dates: start: 20040101
  13. IMMUNOGLOBULINS [Concomitant]
  14. DOXIL                              /00055703/ [Concomitant]
     Dosage: UNK
     Dates: start: 20100501, end: 20100901
  15. GANCICLOVIR [Concomitant]
     Dosage: UNK
     Dates: start: 20110310, end: 20110331
  16. CELLCEPT [Concomitant]
     Dosage: UNK
     Dates: start: 20100501, end: 20101101
  17. CYTOXAN [Concomitant]
  18. VINCRISTINE [Concomitant]
     Dosage: UNK
     Dates: start: 20100201, end: 20100401

REACTIONS (26)
  - ATRIAL FIBRILLATION [None]
  - HEPATITIS B [None]
  - HEPATITIS C [None]
  - ARTHRALGIA [None]
  - ECCHYMOSIS [None]
  - LIVER FUNCTION TEST ABNORMAL [None]
  - CONTUSION [None]
  - ALOPECIA [None]
  - FATIGUE [None]
  - VISION BLURRED [None]
  - EPISTAXIS [None]
  - HAEMATURIA [None]
  - PAIN IN JAW [None]
  - ERYTHEMA [None]
  - DIARRHOEA [None]
  - CATARACT [None]
  - TREMOR [None]
  - PARAESTHESIA [None]
  - TELANGIECTASIA [None]
  - URINARY TRACT INFECTION [None]
  - FLUSHING [None]
  - NOCTURIA [None]
  - VIRAL INFECTION [None]
  - CYTOMEGALOVIRUS INFECTION [None]
  - PLATELET COUNT DECREASED [None]
  - OEDEMA PERIPHERAL [None]
